FAERS Safety Report 7071230-8 (Version None)
Quarter: 2010Q4

REPORT INFORMATION
  Report Type: 
  Country: None (occurrence: None)
  Receive Date: 20101021
  Receipt Date: 20101005
  Transmission Date: 20110411
  Serious: Yes (Hospitalization, Other)
  Sender: FDA-Public Use
  Company Number: ACO_02586_2010

PATIENT
  Age: 55 Year
  Sex: Female

DRUGS (11)
  1. AMPYRA [Suspect]
     Indication: PRODUCT USED FOR UNKNOWN INDICATION
     Dosage: (10 MG 1X ORAL)
     Route: 048
     Dates: start: 20100917, end: 20100917
  2. AMANTADINE [Concomitant]
  3. VYTORIN [Concomitant]
  4. VESICARE [Concomitant]
  5. PRISTIQ [Concomitant]
  6. MULTI-VITAMINS [Concomitant]
  7. VICON /00535101/ [Concomitant]
  8. CALCIUM +VIT D [Concomitant]
  9. VITAMIN B-12 [Concomitant]
  10. VITAMIN D3 [Concomitant]
  11. COPAXONE /03175301/ [Concomitant]

REACTIONS (9)
  - BRUXISM [None]
  - DYSPHONIA [None]
  - EYE ROLLING [None]
  - HALLUCINATION [None]
  - HYPERVENTILATION [None]
  - LOSS OF CONSCIOUSNESS [None]
  - MUSCLE SPASMS [None]
  - SCREAMING [None]
  - TREMOR [None]
